FAERS Safety Report 13522382 (Version 2)
Quarter: 2017Q2

REPORT INFORMATION
  Report Type: Spontaneous
  Country: CN (occurrence: CN)
  Receive Date: 20170508
  Receipt Date: 20170524
  Transmission Date: 20170830
  Serious: Yes (Death, Hospitalization)
  Sender: FDA-Public Use
  Company Number: CN-B.I. PHARMACEUTICALS,INC./RIDGEFIELD-2017-BI-025153

PATIENT
  Sex: Male

DRUGS (3)
  1. PRADAXA [Suspect]
     Active Substance: DABIGATRAN ETEXILATE MESYLATE
     Indication: EMBOLISM VENOUS
     Route: 048
     Dates: start: 20160726, end: 20160825
  2. ERLOTINIB [Concomitant]
     Active Substance: ERLOTINIB
     Indication: PRODUCT USED FOR UNKNOWN INDICATION
     Dosage: 250MG QD
     Dates: start: 20160709, end: 20160824
  3. APATINIB [Concomitant]
     Active Substance: APATINIB
     Indication: PRODUCT USED FOR UNKNOWN INDICATION
     Dosage: 150 QOD
     Dates: start: 20160825, end: 20160831

REACTIONS (3)
  - Disease progression [Fatal]
  - Haemorrhage subcutaneous [Unknown]
  - Pneumonia [Fatal]

NARRATIVE: CASE EVENT DATE: 20160821
